FAERS Safety Report 5653821-1 (Version None)
Quarter: 2008Q1

REPORT INFORMATION
  Report Type: 
  Country: None (occurrence: None)
  Receive Date: 20080306
  Receipt Date: 20080229
  Transmission Date: 20080703
  Serious: Yes (Hospitalization)
  Sender: FDA-Public Use
  Company Number: US-ELI_LILLY_AND_COMPANY-US200802003411

PATIENT
  Sex: Male

DRUGS (8)
  1. ALIMTA [Suspect]
     Indication: NON-SMALL CELL LUNG CANCER STAGE IV
     Dosage: 500 MG/M2, OTHER
     Dates: start: 20061201, end: 20070101
  2. ALIMTA [Suspect]
     Dosage: 600 MG/M2, OTHER
     Dates: start: 20070101, end: 20071201
  3. ALIMTA [Suspect]
     Dosage: 500 MG/M2, OTHER
  4. CISPLATIN [Concomitant]
     Indication: NON-SMALL CELL LUNG CANCER
     Dates: start: 20061201, end: 20070101
  5. OXYCONTIN [Concomitant]
  6. KEPPRA [Concomitant]
  7. VITAMIN B-12 [Concomitant]
     Dosage: UNK, UNK
     Dates: start: 20061101
  8. FOLATE [Concomitant]
     Dosage: UNK, UNK
     Dates: start: 20061101

REACTIONS (5)
  - CELLULITIS [None]
  - CONFUSIONAL STATE [None]
  - GAIT DISTURBANCE [None]
  - INCONTINENCE [None]
  - PYREXIA [None]
